FAERS Safety Report 6148462-6 (Version None)
Quarter: 2009Q2

REPORT INFORMATION
  Report Type: 
  Country: None (occurrence: None)
  Receive Date: 20090408
  Receipt Date: 20090327
  Transmission Date: 20091009
  Serious: Yes (Death)
  Sender: FDA-Public Use
  Company Number: GR-TEVA-190581ISR

PATIENT
  Age: 46 Year
  Sex: Male
  Weight: 99 kg

DRUGS (4)
  1. CISPLATIN [Suspect]
     Indication: HEAD AND NECK CANCER
     Route: 042
     Dates: start: 20070305, end: 20070416
  2. CETUXIMAB [Suspect]
     Indication: HEAD AND NECK CANCER
     Route: 042
     Dates: start: 20070305, end: 20070416
  3. ONDANSETRON [Concomitant]
     Dates: start: 20070306, end: 20070410
  4. FUCICORT [Concomitant]
     Dates: start: 20070312, end: 20070425

REACTIONS (1)
  - HAEMOPTYSIS [None]
